FAERS Safety Report 9460671 (Version 2)
Quarter: 2013Q3

REPORT INFORMATION
  Report Type: Spontaneous
  Country: AU (occurrence: AU)
  Receive Date: 20130815
  Receipt Date: 20130925
  Transmission Date: 20140515
  Serious: Yes (Hospitalization, Other)
  Sender: FDA-Public Use
  Company Number: AU-RB-057069-13

PATIENT
  Age: 50 Year
  Sex: Male
  Weight: 60 kg

DRUGS (3)
  1. SUBOXONE TABLET [Suspect]
     Indication: DRUG DEPENDENCE
     Dosage: PATIENT STARTED ON 14 MG, WAS WEANED TO 2 MG AND THEN WEANED OFF THE SUBOXONE TABLET
     Route: 060
  2. SUBOXONE TABLET [Suspect]
     Route: 060
     Dates: end: 20130714
  3. NICOTINE [Concomitant]
     Indication: PRODUCT USED FOR UNKNOWN INDICATION
     Dosage: 20 CIGARETTES DAILY

REACTIONS (1)
  - Pancreatitis acute [Not Recovered/Not Resolved]
